FAERS Safety Report 8698035 (Version 2)
Quarter: 2013Q1

REPORT INFORMATION
  Report Type: Spontaneous
  Country: FR (occurrence: FR)
  Receive Date: 20120802
  Receipt Date: 20130118
  Transmission Date: 20140127
  Serious: Yes (Other)
  Sender: FDA-Public Use
  Company Number: FR-BRISTOL-MYERS SQUIBB COMPANY-16797359

PATIENT
  Age: 1 Day
  Sex: Male
  Weight: 3.11 kg

DRUGS (3)
  1. REYATAZ [Suspect]
     Dosage: CYCLE:1
     Route: 064
  2. TRUVADA [Suspect]
     Dosage: 1 DF: 200MG/245MG,CYCLE:1
     Route: 064
  3. NORVIR [Suspect]
     Dosage: CYCLE:1
     Route: 064

REACTIONS (2)
  - Haemangioma of skin [Recovered/Resolved with Sequelae]
  - Maternal drugs affecting foetus [None]
